FAERS Safety Report 9646185 (Version 2)
Quarter: 2013Q4

REPORT INFORMATION
  Report Type: Spontaneous
  Country: FR (occurrence: FR)
  Receive Date: 20131025
  Receipt Date: 20131209
  Transmission Date: 20140711
  Serious: Yes (Other)
  Sender: FDA-Public Use
  Company Number: ALCN2013FR005346

PATIENT
  Sex: 0

DRUGS (11)
  1. AZOPT [Suspect]
     Indication: GLAUCOMA
     Dosage: 1 GTT, BID
     Route: 047
     Dates: start: 20111105, end: 20120731
  2. AZOPT [Suspect]
     Dosage: UNK
     Route: 047
     Dates: start: 20121016
  3. FLECAINE [Concomitant]
     Indication: CARDIAC DISORDER
     Dosage: 200 MG, UNK
     Route: 048
  4. FLECAINE [Concomitant]
     Indication: ATRIAL FIBRILLATION
  5. ISOPTINE [Concomitant]
     Indication: CARDIAC DISORDER
     Dosage: 3 TABLETS, QD
     Route: 048
  6. ISOPTINE [Concomitant]
     Indication: ATRIAL FIBRILLATION
  7. PREVISCAN [Concomitant]
     Indication: ATRIAL FIBRILLATION
  8. LESCOL [Concomitant]
     Indication: ATRIAL FIBRILLATION
  9. KENZEN [Concomitant]
  10. XALATAN [Concomitant]
     Indication: GLAUCOMA
     Dosage: UNK
     Dates: start: 20110801, end: 20130205
  11. LUMIGAN [Concomitant]
     Indication: GLAUCOMA
     Dosage: 1 GTT, QD
     Dates: start: 20130203

REACTIONS (3)
  - Atrial fibrillation [Recovered/Resolved]
  - Heart rate irregular [Recovered/Resolved]
  - Heart rate increased [Recovered/Resolved]
